FAERS Safety Report 20651018 (Version 4)
Quarter: 2022Q2

REPORT INFORMATION
  Report Type: Spontaneous
  Country: NO (occurrence: NO)
  Receive Date: 20220329
  Receipt Date: 20220509
  Transmission Date: 20220721
  Serious: Yes (Hospitalization, Other)
  Sender: FDA-Public Use
  Company Number: NO-BRACCO-2022NO01122

PATIENT
  Age: 64 Year
  Sex: Female

DRUGS (3)
  1. SULFUR HEXAFLUORIDE [Suspect]
     Active Substance: SULFUR HEXAFLUORIDE
     Indication: Ultrasound chest
     Dosage: UNK
     Route: 042
     Dates: start: 20220315, end: 20220315
  2. SULFUR HEXAFLUORIDE [Suspect]
     Active Substance: SULFUR HEXAFLUORIDE
     Indication: Ultrasound chest
     Dosage: UNK
     Route: 042
     Dates: start: 20220315, end: 20220315
  3. SULFUR HEXAFLUORIDE [Suspect]
     Active Substance: SULFUR HEXAFLUORIDE
     Indication: Ultrasound chest
     Dosage: UNK
     Route: 042
     Dates: start: 20220315, end: 20220315

REACTIONS (2)
  - Off label use [Unknown]
  - Contrast media reaction [Unknown]

NARRATIVE: CASE EVENT DATE: 20220315
